FAERS Safety Report 24879812 (Version 3)
Quarter: 2025Q1

REPORT INFORMATION
  Report Type: Report from Study
  Country: FI (occurrence: FI)
  Receive Date: 20250123
  Receipt Date: 20250324
  Transmission Date: 20250408
  Serious: Yes (Hospitalization, Other)
  Sender: ABBVIE
  Company Number: FI-ABBVIE-6097812

PATIENT
  Age: 73 Year
  Sex: Male

DRUGS (8)
  1. FOSCARBIDOPA\FOSLEVODOPA [Suspect]
     Active Substance: FOSCARBIDOPA\FOSLEVODOPA
     Indication: Parkinson^s disease
     Route: 058
  2. FOSCARBIDOPA\FOSLEVODOPA [Suspect]
     Active Substance: FOSCARBIDOPA\FOSLEVODOPA
     Route: 058
     Dates: start: 202410
  3. SINEMET [Concomitant]
     Active Substance: CARBIDOPA\LEVODOPA
     Indication: Product used for unknown indication
  4. DIAZEPAM [Concomitant]
     Active Substance: DIAZEPAM
     Indication: Prophylaxis
  5. LESCOL [Concomitant]
     Active Substance: FLUVASTATIN SODIUM
     Indication: Blood cholesterol
  6. XARELTO [Concomitant]
     Active Substance: RIVAROXABAN
     Indication: Pulmonary embolism
     Dates: start: 2024
  7. XARELTO [Concomitant]
     Active Substance: RIVAROXABAN
     Indication: Pulmonary embolism
  8. MIRABEGRON [Concomitant]
     Active Substance: MIRABEGRON
     Indication: Prostatic disorder

REACTIONS (16)
  - Pyrexia [Recovered/Resolved]
  - Infusion site reaction [Recovering/Resolving]
  - Erysipelas [Recovered/Resolved]
  - Infusion site abscess [Recovered/Resolved]
  - Musculoskeletal stiffness [Recovered/Resolved]
  - Infusion site mass [Recovering/Resolving]
  - Infusion site pain [Unknown]
  - Infusion site scar [Unknown]
  - On and off phenomenon [Recovered/Resolved]
  - Panic disorder [Recovered/Resolved]
  - Catheter site discomfort [Unknown]
  - Weight decreased [Unknown]
  - Infusion site bruising [Unknown]
  - Catheter site pain [Unknown]
  - Skin infection [Unknown]
  - Rehabilitation therapy [Unknown]

NARRATIVE: CASE EVENT DATE: 20241201
